FAERS Safety Report 8113517-3 (Version None)
Quarter: 2012Q1

REPORT INFORMATION
  Report Type: 
  Country: None (occurrence: None)
  Receive Date: 20120203
  Receipt Date: 20120124
  Transmission Date: 20120608
  Serious: Yes (Other)
  Sender: FDA-Public Use
  Company Number: BR-JNJFOC-20120111079

PATIENT
  Sex: Male

DRUGS (2)
  1. REMICADE [Suspect]
     Indication: COLITIS ULCERATIVE
     Route: 042
  2. DEXAMETHASONE [Concomitant]

REACTIONS (4)
  - CHEST PAIN [None]
  - TACHYCARDIA [None]
  - INFUSION RELATED REACTION [None]
  - DYSPNOEA [None]
